FAERS Safety Report 4403932-3 (Version None)
Quarter: 2004Q3

REPORT INFORMATION
  Report Type: 
  Country: None (occurrence: None)
  Receive Date: 20040721
  Receipt Date: 20040715
  Transmission Date: 20050211
  Serious: Yes (Hospitalization)
  Sender: FDA-Public Use
  Company Number: IT-MERCK-0407ITA00024

PATIENT
  Age: 62 Year
  Sex: Female

DRUGS (1)
  1. COSOPT [Suspect]
     Indication: OPEN ANGLE GLAUCOMA
     Route: 047
     Dates: start: 20040401, end: 20040401

REACTIONS (6)
  - ACCELERATED IDIOVENTRICULAR RHYTHM [None]
  - ASTHENIA [None]
  - AV DISSOCIATION [None]
  - BUNDLE BRANCH BLOCK LEFT [None]
  - PALPITATIONS [None]
  - VENTRICULAR EXTRASYSTOLES [None]
